FAERS Safety Report 9869538 (Version 2)
Quarter: 2014Q1

REPORT INFORMATION
  Report Type: Spontaneous
  Country: US (occurrence: US)
  Receive Date: 20140205
  Receipt Date: 20140325
  Transmission Date: 20141002
  Serious: No
  Sender: FDA-Public Use
  Company Number: US-PFIZER INC-2014032770

PATIENT
  Sex: Female

DRUGS (5)
  1. NEURONTIN [Suspect]
     Indication: DIABETIC NEUROPATHY
     Dosage: 900 MG, 3X/DAY
     Route: 048
     Dates: start: 2008
  2. NEURONTIN [Suspect]
     Dosage: 1200 MG, 3X/DAY
  3. HUMALOG [Concomitant]
     Indication: DIABETES MELLITUS
     Dosage: 36 IU, 3X/DAY
  4. LANTUS [Concomitant]
     Indication: DIABETES MELLITUS
     Dosage: 56 IU, 2X/DAY
  5. NITROSTAT [Concomitant]
     Indication: CHEST PAIN
     Dosage: 24 MG, AS NEEDED

REACTIONS (1)
  - Drug ineffective [Unknown]
